FAERS Safety Report 6529682-5 (Version None)
Quarter: 2010Q1

REPORT INFORMATION
  Report Type: 
  Country: None (occurrence: None)
  Receive Date: 20100107
  Receipt Date: 20091221
  Transmission Date: 20100710
  Serious: Yes (Death, Other)
  Sender: FDA-Public Use
  Company Number: PHHY2009JP32298

PATIENT
  Sex: Male

DRUGS (10)
  1. AMN107 AMN+CAP [Suspect]
     Indication: CHRONIC MYELOID LEUKAEMIA
     Dosage: 800 MG DAILY
     Route: 048
     Dates: start: 20090305, end: 20090412
  2. ENDOXAN [Concomitant]
     Indication: ACUTE MYELOID LEUKAEMIA
     Dosage: 1000 MG, UNK
     Dates: start: 20090302, end: 20090302
  3. ENDOXAN [Concomitant]
     Dosage: 16 MG, UNK
     Dates: start: 20090302, end: 20090304
  4. DECADRON [Concomitant]
     Indication: ACUTE MYELOID LEUKAEMIA
     Dosage: 16 MG, UNK
     Route: 042
     Dates: start: 20090302, end: 20090407
  5. DECADRON [Concomitant]
     Dosage: 4 MG, UNK
     Route: 042
     Dates: start: 20090302, end: 20090407
  6. DECADRON [Concomitant]
     Dosage: 3 MG, UNK
     Route: 048
     Dates: start: 20090408, end: 20090502
  7. DECADRON [Concomitant]
     Dosage: 1.5 MG, UNK
     Route: 048
     Dates: start: 20090408, end: 20090502
  8. SPRYCEL [Concomitant]
     Indication: ACUTE MYELOID LEUKAEMIA
     Dosage: 140 MG, UNK
     Route: 048
     Dates: start: 20090413, end: 20090502
  9. PINORUBIN [Concomitant]
     Indication: ACUTE MYELOID LEUKAEMIA
     Dosage: 80 MG, UNK
     Route: 042
     Dates: start: 20090302, end: 20090302
  10. ONCOVIN [Concomitant]
     Indication: ACUTE MYELOID LEUKAEMIA
     Dosage: 2 MG, UNK
     Route: 042
     Dates: start: 20090302, end: 20090302

REACTIONS (7)
  - ALANINE AMINOTRANSFERASE INCREASED [None]
  - ASPARTATE AMINOTRANSFERASE INCREASED [None]
  - BLOOD ALKALINE PHOSPHATASE INCREASED [None]
  - CHRONIC MYELOID LEUKAEMIA TRANSFORMATION [None]
  - GAMMA-GLUTAMYLTRANSFERASE INCREASED [None]
  - THERAPEUTIC RESPONSE DECREASED [None]
  - WHITE BLOOD CELL COUNT INCREASED [None]
